FAERS Safety Report 12632480 (Version 3)
Quarter: 2016Q3

REPORT INFORMATION
  Report Type: Spontaneous
  Country: US (occurrence: US)
  Receive Date: 20160808
  Receipt Date: 20160825
  Transmission Date: 20161109
  Serious: No
  Sender: FDA-Public Use
  Company Number: US-BEH-2016063015

PATIENT
  Sex: Female
  Weight: 83.92 kg

DRUGS (19)
  1. ACETAMINOPHEN. [Concomitant]
     Active Substance: ACETAMINOPHEN
  2. APIDRA [Concomitant]
     Active Substance: INSULIN GLULISINE
  3. PROBIOTIC [Concomitant]
     Active Substance: PROBIOTICS NOS
  4. TRADJENTA [Concomitant]
     Active Substance: LINAGLIPTIN
  5. CALCIUM [Concomitant]
     Active Substance: CALCIUM
  6. VITAMIN D2 [Concomitant]
     Active Substance: ERGOCALCIFEROL
  7. DIPHENHYDRAMINE. [Concomitant]
     Active Substance: DIPHENHYDRAMINE
  8. EPIPEN [Concomitant]
     Active Substance: EPINEPHRINE
  9. CLONAZEPAM. [Concomitant]
     Active Substance: CLONAZEPAM
  10. CLINDAMYCIN [Concomitant]
     Active Substance: CLINDAMYCIN\CLINDAMYCIN PHOSPHATE
  11. VITAMIN C [Concomitant]
     Active Substance: ASCORBIC ACID
  12. LIDOCAINE. [Concomitant]
     Active Substance: LIDOCAINE
  13. SYNTHROID [Concomitant]
     Active Substance: LEVOTHYROXINE SODIUM
  14. METFORMIN [Concomitant]
     Active Substance: METFORMIN HYDROCHLORIDE
  15. IBUPROFEN. [Concomitant]
     Active Substance: IBUPROFEN
  16. CEVIMELINE. [Concomitant]
     Active Substance: CEVIMELINE
  17. ATORVASTATIN [Concomitant]
     Active Substance: ATORVASTATIN
  18. HIZENTRA [Suspect]
     Active Substance: HUMAN IMMUNOGLOBULIN G
     Indication: IMMUNODEFICIENCY
     Dosage: 8 G, QW
     Route: 058
     Dates: start: 20151104
  19. MULTIVITAMINS WITH IRON [Concomitant]
     Active Substance: IRON\VITAMINS

REACTIONS (2)
  - Device failure [Unknown]
  - Pyrexia [Unknown]
